FAERS Safety Report 4466813-5 (Version None)
Quarter: 2004Q4

REPORT INFORMATION
  Report Type: 
  Country: None (occurrence: None)
  Receive Date: 20041006
  Receipt Date: 20040929
  Transmission Date: 20050328
  Serious: Yes (Hospitalization)
  Sender: FDA-Public Use
  Company Number: MX-BRISTOL-MYERS SQUIBB COMPANY-12718540

PATIENT
  Age: 82 Year
  Sex: Female

DRUGS (4)
  1. GATIFLOXACIN [Suspect]
     Indication: PNEUMONIA
     Route: 048
     Dates: start: 20040917, end: 20040922
  2. PAXIL [Concomitant]
  3. TAFIL [Concomitant]
  4. LACIPIL [Concomitant]

REACTIONS (6)
  - AGITATION [None]
  - BLOOD GLUCOSE INCREASED [None]
  - DEHYDRATION [None]
  - DEPRESSED LEVEL OF CONSCIOUSNESS [None]
  - POLYDIPSIA [None]
  - POLYURIA [None]
